FAERS Safety Report 17718842 (Version 1)
Quarter: 2020Q2

REPORT INFORMATION
  Report Type: Spontaneous
  Country: US (occurrence: US)
  Receive Date: 20200428
  Receipt Date: 20200428
  Transmission Date: 20200714
  Serious: Yes (Disabling)
  Sender: FDA-Public Use
  Company Number: None

PATIENT
  Age: 49 Year
  Sex: Male
  Weight: 119.25 kg

DRUGS (10)
  1. SIMIVASTATIN [Concomitant]
  2. TRUJENTA [Concomitant]
  3. GLIMEPERIDE [Concomitant]
     Active Substance: GLIMEPIRIDE
  4. METFORMIN [Concomitant]
     Active Substance: METFORMIN HYDROCHLORIDE
  5. METHOTREXATE. [Concomitant]
     Active Substance: METHOTREXATE
  6. BABY ASPIRIN [Concomitant]
     Active Substance: ASPIRIN
  7. PIOGLITAZONE HCL 30 MG [Suspect]
     Active Substance: PIOGLITAZONE HYDROCHLORIDE
     Indication: DIABETES MELLITUS
     Route: 048
     Dates: start: 20190925, end: 20191003
  8. LISINOPRIL. [Concomitant]
     Active Substance: LISINOPRIL
  9. FOLIC ACID. [Concomitant]
     Active Substance: FOLIC ACID
  10. FARXIGA [Concomitant]
     Active Substance: DAPAGLIFLOZIN PROPANEDIOL

REACTIONS (7)
  - Skin exfoliation [None]
  - Asthenia [None]
  - Oedema [None]
  - Alopecia [None]
  - Pain [None]
  - Skin fissures [None]
  - Arthritis [None]

NARRATIVE: CASE EVENT DATE: 20191001
